FAERS Safety Report 21207364 (Version 1)
Quarter: 2022Q3

REPORT INFORMATION
  Report Type: Spontaneous
  Country: US (occurrence: None)
  Receive Date: 20220811
  Receipt Date: 20220811
  Transmission Date: 20221026
  Serious: No
  Sender: FDA-Public Use
  Company Number: None

PATIENT
  Age: 53 Year
  Sex: Female

DRUGS (2)
  1. DEVICE [Suspect]
     Active Substance: DEVICE
  2. REMODULIN [Suspect]
     Active Substance: TREPROSTINIL
     Indication: Pulmonary arterial hypertension
     Dosage: OTHER QUANTITY : 30.7NG/KG/MIN;?OTHER FREQUENCY : CONTINUOUS ;?
     Route: 058
     Dates: start: 202202

REACTIONS (3)
  - Product identification number issue [None]
  - Dyspnoea [None]
  - Device programming error [None]

NARRATIVE: CASE EVENT DATE: 20220810
